FAERS Safety Report 17477200 (Version 2)
Quarter: 2020Q1

REPORT INFORMATION
  Report Type: Spontaneous
  Country: US (occurrence: US)
  Receive Date: 20200229
  Receipt Date: 20200229
  Transmission Date: 20200409
  Serious: No
  Sender: FDA-Public Use
  Company Number: US-JNJFOC-20200212832

PATIENT
  Sex: Female
  Weight: 73.55 kg

DRUGS (1)
  1. ZYRTEC [Suspect]
     Active Substance: CETIRIZINE HYDROCHLORIDE
     Indication: PRODUCT USED FOR UNKNOWN INDICATION
     Dosage: 1 CAPLET A DAY ONCE A DAY?LAST ADMIN DATE: 06/FEB/2020
     Route: 048
     Dates: start: 20200107

REACTIONS (1)
  - Drug ineffective [Unknown]
